FAERS Safety Report 19056442 (Version 1)
Quarter: 2021Q1

REPORT INFORMATION
  Report Type: Report from Study
  Country: GB (occurrence: GB)
  Receive Date: 20210325
  Receipt Date: 20210325
  Transmission Date: 20210420
  Serious: Yes (Other)
  Sender: FDA-Public Use
  Company Number: GB-PFIZER INC-2021318628

PATIENT
  Age: 7 Month
  Sex: Female

DRUGS (9)
  1. PENICILLIN V BASIC [Concomitant]
     Active Substance: PENICILLIN V POTASSIUM
     Dosage: UNK, 2X/DAY, (250?500 MG LIFELONG)
  2. CICLOSPORIN [Concomitant]
     Active Substance: CYCLOSPORINE
     Indication: GRAFT VERSUS HOST DISEASE
     Dosage: UNK
  3. CYCLOPHOSPHAMIDE. [Suspect]
     Active Substance: CYCLOPHOSPHAMIDE
     Indication: IMMUNOSUPPRESSION
     Dosage: 300 MG/M2, 1X/DAY, (ON DAY ?7 TO DAY ?4)
  4. ALEMTUZUMAB [Suspect]
     Active Substance: ALEMTUZUMAB
     Indication: IMMUNOSUPPRESSION
     Dosage: 0.2 MG/KG, 1X/DAY
  5. ACICLOVIR [Concomitant]
     Active Substance: ACYCLOVIR
     Dosage: UNK, 1X/DAY, (300?600 MG/M2)
     Route: 048
  6. COTRIMOXAZOLE [Concomitant]
     Active Substance: SULFAMETHOXAZOLE\TRIMETHOPRIM
     Dosage: UNK, (ADJUSTED TO BODY?SURFACE AREA)
  7. CIPROFLOXACIN. [Concomitant]
     Active Substance: CIPROFLOXACIN
     Indication: PROPHYLAXIS
     Dosage: 7.5 MG/KG, 2X/DAY
  8. FLUDARABINE PHOSPHATE. [Suspect]
     Active Substance: FLUDARABINE PHOSPHATE
     Indication: IMMUNOSUPPRESSION
     Dosage: 30 MG/M2, 1X/DAY, (ON DAY ?8 TO DAY ?4)
  9. IMMUNOGLOBULIN HUMAN NORMAL [Concomitant]
     Active Substance: HUMAN IMMUNOGLOBULIN G
     Dosage: UNK, 1X/DAY, (0.5 G/KG)
     Route: 042

REACTIONS (2)
  - Gastrointestinal toxicity [Unknown]
  - Hepatotoxicity [Unknown]
